FAERS Safety Report 24305316 (Version 1)
Quarter: 2024Q3

REPORT INFORMATION
  Report Type: Report from Study
  Country: FR (occurrence: FR)
  Receive Date: 20240911
  Receipt Date: 20240911
  Transmission Date: 20241017
  Serious: Yes (Life-Threatening)
  Sender: SERVIER
  Company Number: FR-SERVIER-S24011006

PATIENT

DRUGS (8)
  1. PEGASPARGASE [Suspect]
     Active Substance: PEGASPARGASE
     Indication: Acute lymphocytic leukaemia
     Dosage: 2350 IU, D4
     Route: 042
     Dates: start: 20211007
  2. CYTARABINE [Suspect]
     Active Substance: CYTARABINE
     Indication: Acute lymphocytic leukaemia
     Dosage: 30 MG (D4, D31)
     Route: 037
     Dates: start: 20211007, end: 20211108
  3. CYTARABINE [Suspect]
     Active Substance: CYTARABINE
     Dosage: 70 MG (D31, D32, D33, D34, D38, D39)
     Route: 042
     Dates: start: 20211108
  4. HYDROCORTISONE [Suspect]
     Active Substance: HYDROCORTISONE\HYDROCORTISONE ACETATE
     Indication: Acute lymphocytic leukaemia
     Dosage: 15 MG (D4, D31)
     Route: 037
     Dates: start: 20211007, end: 20211108
  5. METHOTREXATE [Suspect]
     Active Substance: METHOTREXATE
     Indication: Acute lymphocytic leukaemia
     Dosage: 12 MG (D4, D31)
     Route: 037
     Dates: start: 20211007, end: 20211108
  6. VINCRISTINE [Suspect]
     Active Substance: VINCRISTINE
     Indication: Acute lymphocytic leukaemia
     Dosage: 1.4 MG (D1, D8, D15)
     Route: 042
     Dates: start: 20211004
  7. DOXORUBICIN [Suspect]
     Active Substance: DOXORUBICIN
     Indication: Acute lymphocytic leukaemia
     Dosage: 24 MG (D1, D8, D15)
     Route: 042
     Dates: start: 20211004, end: 20211018
  8. CYCLOPHOSPHAMIDE [Suspect]
     Active Substance: CYCLOPHOSPHAMIDE
     Indication: Acute lymphocytic leukaemia
     Dosage: 940 MG (D29)
     Route: 042
     Dates: start: 20211105, end: 20211105

REACTIONS (1)
  - Hyperbilirubinaemia [Recovered/Resolved]

NARRATIVE: CASE EVENT DATE: 20211117
